FAERS Safety Report 5894112-3 (Version None)
Quarter: 2008Q3

REPORT INFORMATION
  Report Type: 
  Country: None (occurrence: None)
  Receive Date: 20080923
  Receipt Date: 20080108
  Transmission Date: 20090109
  Serious: No
  Sender: FDA-Public Use
  Company Number: US-ASTRAZENECA-2008UW00578

PATIENT
  Age: 26 Year
  Sex: Female
  Weight: 63.5 kg

DRUGS (4)
  1. SEROQUEL [Suspect]
     Indication: DEPRESSION
     Route: 048
     Dates: start: 20070601
  2. LEXAPRO [Concomitant]
  3. TOPAMAX [Concomitant]
  4. KLONOPIN [Concomitant]

REACTIONS (3)
  - ACTIVITIES OF DAILY LIVING IMPAIRED [None]
  - DEPRESSION [None]
  - HEADACHE [None]
